FAERS Safety Report 6656426-9 (Version None)
Quarter: 2010Q1

REPORT INFORMATION
  Report Type: 
  Country: None (occurrence: None)
  Receive Date: 20100326
  Receipt Date: 20100326
  Transmission Date: 20100710
  Serious: Yes (Other)
  Sender: FDA-Public Use
  Company Number: None

PATIENT
  Age: 60 Year
  Sex: Female
  Weight: 53.2 kg

DRUGS (1)
  1. HYDROXYCHLOROQUINE SULFATE [Suspect]
     Indication: CONNECTIVE TISSUE DISORDER
     Dosage: 200 MG 2X/DAY ORAL
     Route: 048

REACTIONS (1)
  - RETINAL DISORDER [None]
